FAERS Safety Report 8937596 (Version 4)
Quarter: 2013Q1

REPORT INFORMATION
  Report Type: Spontaneous
  Country: RU (occurrence: None)
  Receive Date: 20121121
  Receipt Date: 20121217
  Transmission Date: 20140127
  Serious: Yes (Life-Threatening, Hospitalization, Other)
  Sender: FDA-Public Use
  Company Number: MPS1-1000825

PATIENT
  Age: 12 Year
  Sex: Male
  Weight: 23 kg

DRUGS (7)
  1. ALDURAZYME [Suspect]
     Indication: MUCOPOLYSACCHARIDOSIS I
     Route: 042
     Dates: start: 201202, end: 20121108
  2. CAPOTEN (CAPTOPRIL) [Concomitant]
  3. VEROSPIRON (SPIRONOLACTONE) [Concomitant]
  4. DIGOXIN (DIGOXIN) [Concomitant]
  5. ZYVOX (LINEZOLID) [Concomitant]
  6. FUROSEMID (FUROSEMIDE) [Concomitant]
  7. ATACAND (CANDESARTAN CILEXETIL) [Concomitant]

REACTIONS (11)
  - Cardiac arrest [None]
  - Respiratory arrest [None]
  - Condition aggravated [None]
  - Tachycardia [None]
  - Dyspnoea [None]
  - Cyanosis [None]
  - Pneumonia [None]
  - Haemodynamic instability [None]
  - Foreign body aspiration [None]
  - Pyrexia [None]
  - Renal impairment [None]
